FAERS Safety Report 7325179 (Version 8)
Quarter: 2013Q1

REPORT INFORMATION
  Report Type: Spontaneous
  Country: US (occurrence: US)
  Receive Date: 20100319
  Receipt Date: 20130214
  Transmission Date: 20140127
  Serious: Yes (Life-Threatening, Hospitalization)
  Sender: FDA-Public Use
  Company Number: US-BAYER-US-2007-038587

PATIENT
  Age: 37 Year
  Sex: Female
  Weight: 55 kg

DRUGS (13)
  1. YASMIN [Suspect]
     Indication: ORAL CONTRACEPTION
     Route: 048
     Dates: start: 200703, end: 200708
  2. PLAVIX [Concomitant]
     Route: 065
     Dates: start: 20070828
  3. METOPROLOL [Concomitant]
     Route: 048
     Dates: start: 20070828
  4. NITROQUICK [Concomitant]
     Route: 065
     Dates: start: 20070828
  5. MEPERIDINE/PROMETHAZINE [Concomitant]
     Route: 048
     Dates: start: 20070720
  6. NEXIUM [Concomitant]
     Indication: PROPHYLAXIS
     Dates: start: 200708
  7. LIPITOR [Concomitant]
     Route: 065
     Dates: start: 200708
  8. LISINOPRIL [Concomitant]
     Route: 065
     Dates: start: 200708
  9. FLUCONAZOLE [Concomitant]
     Dosage: 150 MG, UNK
     Dates: start: 20070727
  10. BETA BLOCKING AGENTS [Concomitant]
  11. ACE INHIBITOR NOS [Concomitant]
  12. STATIN [Concomitant]
  13. PRENATAL VITAMINS [Concomitant]

REACTIONS (3)
  - Myocardial infarction [Not Recovered/Not Resolved]
  - Chest pain [Not Recovered/Not Resolved]
  - Dizziness [Not Recovered/Not Resolved]
